FAERS Safety Report 14110956 (Version 3)
Quarter: 2018Q1

REPORT INFORMATION
  Report Type: Report from Study
  Country: None (occurrence: GB)
  Receive Date: 20171020
  Receipt Date: 20180324
  Transmission Date: 20180508
  Serious: Yes (Death, Hospitalization, Other)
  Sender: FDA-Public Use
  Company Number: GB-ABBVIE-17K-167-2137973-00

PATIENT
  Age: 66 Year
  Sex: Female
  Weight: 58 kg

DRUGS (4)
  1. HYDROXYCHLOROQUINE [Concomitant]
     Active Substance: HYDROXYCHLOROQUINE
     Indication: RHEUMATOID ARTHRITIS
  2. AZATHIOPRINE. [Concomitant]
     Active Substance: AZATHIOPRINE
     Indication: RHEUMATOID ARTHRITIS
  3. HUMIRA [Suspect]
     Active Substance: ADALIMUMAB
     Indication: RHEUMATOID ARTHRITIS
     Route: 058
  4. HUMIRA [Suspect]
     Active Substance: ADALIMUMAB
     Indication: RHEUMATOID ARTHRITIS
     Route: 058
     Dates: start: 20120420

REACTIONS (9)
  - Depressed level of consciousness [Unknown]
  - Pneumonia [Fatal]
  - Procedural haemorrhage [Fatal]
  - Respiratory failure [Fatal]
  - Femoral neck fracture [Fatal]
  - Haemorrhagic disorder [Unknown]
  - Anaemia [Unknown]
  - Fall [Unknown]
  - Bronchiectasis [Fatal]

NARRATIVE: CASE EVENT DATE: 201708
